FAERS Safety Report 5487454-7 (Version None)
Quarter: 2007Q4

REPORT INFORMATION
  Report Type: 
  Country: None (occurrence: None)
  Receive Date: 20071016
  Receipt Date: 20071004
  Transmission Date: 20080405
  Serious: Yes (Hospitalization, Other)
  Sender: FDA-Public Use
  Company Number: US-PFIZER INC-2006149998

PATIENT
  Sex: Male
  Weight: 131.5 kg

DRUGS (3)
  1. CELEBREX [Suspect]
     Indication: PAIN
  2. BEXTRA [Suspect]
     Indication: PAIN
  3. VIOXX [Suspect]
     Indication: GOUT
     Dates: start: 20010101, end: 20030901

REACTIONS (4)
  - CEREBROVASCULAR ACCIDENT [None]
  - CORONARY ARTERY DISEASE [None]
  - MYOCARDIAL INFARCTION [None]
  - TRANSIENT ISCHAEMIC ATTACK [None]
